FAERS Safety Report 21389838 (Version 1)
Quarter: 2022Q3

REPORT INFORMATION
  Report Type: Spontaneous
  Country: AF (occurrence: AF)
  Receive Date: 20220929
  Receipt Date: 20220929
  Transmission Date: 20221027
  Serious: Yes (Life-Threatening, Hospitalization, Other)
  Sender: FDA-Public Use
  Company Number: BE-BAXTER-2022BAX019458

PATIENT
  Age: 45 Year
  Sex: Female
  Weight: 55 kg

DRUGS (7)
  1. DEXTROSE MONOHYDRATE [Suspect]
     Active Substance: DEXTROSE MONOHYDRATE
     Indication: Alanine aminotransferase increased
     Dosage: 500 ML, TWICE A DAY, FLEX. BAG, PVC FREE
     Route: 042
     Dates: start: 20220616, end: 20220628
  2. DEXTROSE MONOHYDRATE [Suspect]
     Active Substance: DEXTROSE MONOHYDRATE
     Indication: Hypertransaminasaemia
  3. BEDAQUILINE [Concomitant]
     Active Substance: BEDAQUILINE
     Indication: Tuberculosis
     Dosage: 200 MG, 3 TIMES IN A WEEK
     Route: 048
     Dates: start: 20220313, end: 20220616
  4. CLOFAZIMINE [Concomitant]
     Active Substance: CLOFAZIMINE
     Indication: Tuberculosis
     Dosage: 100 MG, ONCE DAILY
     Route: 048
     Dates: start: 20220313, end: 20220616
  5. PYRAZINAMIDE [Concomitant]
     Active Substance: PYRAZINAMIDE
     Indication: Tuberculosis
     Dosage: 1600 MG, ONCE DAILY
     Route: 048
     Dates: start: 20220313, end: 20220616
  6. LEVOFLOXACIN [Concomitant]
     Active Substance: LEVOFLOXACIN
     Indication: Tuberculosis
     Dosage: 1500 MG, ONCE DAILY
     Route: 048
     Dates: start: 20220313, end: 20220616
  7. LINEZOLID [Concomitant]
     Active Substance: LINEZOLID
     Indication: Tuberculosis
     Dosage: 600 MG, ONCE DAILY
     Route: 048
     Dates: start: 20220313, end: 20220616

REACTIONS (5)
  - Myalgia [Recovered/Resolved]
  - Back pain [Recovered/Resolved]
  - Anaphylactoid reaction [Recovered/Resolved]
  - Chills [Recovered/Resolved]
  - Pyrexia [Recovered/Resolved]

NARRATIVE: CASE EVENT DATE: 20220628
